FAERS Safety Report 8436467-1 (Version None)
Quarter: 2012Q2

REPORT INFORMATION
  Report Type: 
  Country: None (occurrence: None)
  Receive Date: 20120614
  Receipt Date: 20120611
  Transmission Date: 20120825
  Serious: Yes (Hospitalization)
  Sender: FDA-Public Use
  Company Number: DE-BAYER-2012-036308

PATIENT
  Age: 44 Year
  Sex: Female
  Weight: 83 kg

DRUGS (3)
  1. BETASERON [Suspect]
     Indication: RELAPSING-REMITTING MULTIPLE SCLEROSIS
     Dosage: UNK UNK, QOD
     Route: 058
     Dates: start: 20100301, end: 20120401
  2. LEVOTHYROXINE SODIUM [Concomitant]
     Dosage: UNK
     Route: 048
  3. DOXEPIN [Concomitant]
     Dosage: 50 MG, UNK
     Route: 048

REACTIONS (8)
  - PYREXIA [None]
  - DYSPNOEA EXERTIONAL [None]
  - PHOTOPSIA [None]
  - INJECTION SITE PAIN [None]
  - GENERAL PHYSICAL HEALTH DETERIORATION [None]
  - CUTANEOUS VASCULITIS [None]
  - RASH PAPULAR [None]
  - EPISTAXIS [None]
